FAERS Safety Report 20863953 (Version 1)
Quarter: 2022Q2

REPORT INFORMATION
  Report Type: Spontaneous
  Country: US (occurrence: US)
  Receive Date: 20220523
  Receipt Date: 20220523
  Transmission Date: 20220721
  Serious: Yes (Other)
  Sender: FDA-Public Use
  Company Number: US-NOVARTISPH-NVSC2022US117795

PATIENT
  Age: 62 Year
  Sex: Female

DRUGS (7)
  1. NOREPINEPHRINE [Suspect]
     Active Substance: NOREPINEPHRINE
     Indication: Carcinoid crisis
     Dosage: UNK
     Route: 065
  2. PHENYLEPHRINE [Suspect]
     Active Substance: PHENYLEPHRINE HYDROCHLORIDE
     Indication: Carcinoid crisis
     Dosage: UNK
     Route: 065
  3. VASOPRESSIN [Suspect]
     Active Substance: VASOPRESSIN
     Indication: Carcinoid crisis
     Dosage: UNK
     Route: 065
  4. MILRINONE [Suspect]
     Active Substance: MILRINONE
     Indication: Carcinoid crisis
     Dosage: UNK
     Route: 041
  5. OCTREOTIDE [Concomitant]
     Active Substance: OCTREOTIDE
     Indication: Carcinoid crisis
     Dosage: 200 UG, TID
     Route: 065
  6. OCTREOTIDE [Concomitant]
     Active Substance: OCTREOTIDE
     Dosage: 50MCG/HOUR
     Route: 041
  7. OCTREOTIDE [Concomitant]
     Active Substance: OCTREOTIDE
     Dosage: 200MCG/H
     Route: 041

REACTIONS (3)
  - Carcinoid crisis [Unknown]
  - Condition aggravated [Unknown]
  - Drug ineffective for unapproved indication [Unknown]
